FAERS Safety Report 10563938 (Version 2)
Quarter: 2014Q4

REPORT INFORMATION
  Report Type: Spontaneous
  Country: FR (occurrence: FR)
  Receive Date: 20141104
  Receipt Date: 20141104
  Transmission Date: 20150529
  Serious: Yes (Other)
  Sender: FDA-Public Use
  Company Number: FR-BAYER-2014-143213

PATIENT
  Age: 67 Year
  Sex: Female
  Weight: 72 kg

DRUGS (3)
  1. ULTRAVIST [Suspect]
     Active Substance: IOPROMIDE
     Indication: ISCHAEMIA
  2. ULTRAVIST [Suspect]
     Active Substance: IOPROMIDE
     Indication: ANGIOGRAM PERIPHERAL
     Dosage: 120 ML, ONCE
     Route: 042
     Dates: start: 20140923, end: 20140923
  3. ULTRAVIST [Suspect]
     Active Substance: IOPROMIDE
     Indication: ANGIOGRAM

REACTIONS (5)
  - Respiratory disorder [Recovered/Resolved]
  - Pruritus [Recovered/Resolved]
  - Angioedema [None]
  - Erythema [Recovered/Resolved]
  - Blister [Recovered/Resolved]

NARRATIVE: CASE EVENT DATE: 20140923
